FAERS Safety Report 5664168-1 (Version None)
Quarter: 2008Q1

REPORT INFORMATION
  Report Type: 
  Country: None (occurrence: None)
  Receive Date: 20080312
  Receipt Date: 20080228
  Transmission Date: 20080703
  Serious: Yes (Life-Threatening)
  Sender: FDA-Public Use
  Company Number: FABR-1000115

PATIENT
  Age: 35 Year
  Sex: Male

DRUGS (4)
  1. FABRAZYME [Suspect]
     Indication: FABRY'S DISEASE
     Dosage: 80 MG,Q2W,
     Dates: start: 20030701, end: 20060801
  2. BENADRYL [Concomitant]
  3. ACETAMINOPHEN [Concomitant]
  4. LASIX [Concomitant]

REACTIONS (2)
  - TREATMENT NONCOMPLIANCE [None]
  - VIOLENCE-RELATED SYMPTOM [None]
